FAERS Safety Report 18569108 (Version 1)
Quarter: 2020Q4

REPORT INFORMATION
  Report Type: Spontaneous
  Country: US (occurrence: US)
  Receive Date: 20201201
  Receipt Date: 20201201
  Transmission Date: 20210114
  Serious: No
  Sender: FDA-Public Use
  Company Number: None

PATIENT
  Age: 23 Year
  Sex: Female
  Weight: 62.6 kg

DRUGS (1)
  1. NEXPLANON [Suspect]
     Active Substance: ETONOGESTREL
     Dates: start: 20190321

REACTIONS (8)
  - Amenorrhoea [None]
  - Suicidal ideation [None]
  - Migraine [None]
  - Feeling abnormal [None]
  - Anger [None]
  - Menorrhagia [None]
  - Abdominal pain upper [None]
  - Loss of libido [None]
